FAERS Safety Report 16998670 (Version 1)
Quarter: 2019Q4

REPORT INFORMATION
  Report Type: Spontaneous
  Country: US (occurrence: US)
  Receive Date: 20190924
  Receipt Date: 20190924
  Transmission Date: 20200122
  Serious: Yes (Hospitalization)
  Sender: FDA-Public Use
  Company Number: None

PATIENT
  Age: 57 Year
  Sex: Male

DRUGS (2)
  1. AMOXICILLIN/CLAVULANATE [Suspect]
     Active Substance: AMOXICILLIN\CLAVULANATE POTASSIUM
     Indication: CELLULITIS
     Dates: start: 20190821, end: 20190826
  2. LISINOPRIL. [Suspect]
     Active Substance: LISINOPRIL
     Indication: HYPERTENSION
     Dates: start: 20190118, end: 20190826

REACTIONS (6)
  - Urticaria [None]
  - Purpura [None]
  - Bacteraemia [None]
  - Pruritus [None]
  - Angioedema [None]
  - Cellulitis [None]

NARRATIVE: CASE EVENT DATE: 20190826
